FAERS Safety Report 17810925 (Version 1)
Quarter: 2020Q2

REPORT INFORMATION
  Report Type: Spontaneous
  Country: US (occurrence: US)
  Receive Date: 20200521
  Receipt Date: 20200521
  Transmission Date: 20200714
  Serious: Yes (Disabling, Other)
  Sender: FDA-Public Use
  Company Number: US-SA-2020SA129112

PATIENT
  Sex: Female

DRUGS (1)
  1. ZANTAC 150 (RANITIDINE HYDROCHLORIDE) [Suspect]
     Active Substance: RANITIDINE HYDROCHLORIDE
     Dosage: 1000 MG, QW
     Dates: start: 2007, end: 2015

REACTIONS (4)
  - Injury [Unknown]
  - Renal cancer [Unknown]
  - Loss of personal independence in daily activities [Unknown]
  - Anxiety [Unknown]

NARRATIVE: CASE EVENT DATE: 20170518
